FAERS Safety Report 5176333-0 (Version None)
Quarter: 2006Q4

REPORT INFORMATION
  Report Type: 
  Country: None (occurrence: None)
  Receive Date: 20061215
  Receipt Date: 20061207
  Transmission Date: 20070319
  Serious: Yes (Hospitalization, Other)
  Sender: FDA-Public Use
  Company Number: 2006AP05860

PATIENT
  Age: 65 Year
  Sex: Male

DRUGS (7)
  1. CRESTOR [Suspect]
     Route: 048
  2. CRESTOR [Suspect]
     Route: 048
     Dates: start: 20061206
  3. CARDIPREM [Concomitant]
  4. KARVEZIDE [Concomitant]
  5. KARVEA [Concomitant]
  6. NORVASC [Concomitant]
  7. LOSEC [Concomitant]

REACTIONS (2)
  - ARTERIAL REPAIR [None]
  - TENDON PAIN [None]
